FAERS Safety Report 5222316-1 (Version None)
Quarter: 2007Q1

REPORT INFORMATION
  Report Type: 
  Country: None (occurrence: None)
  Receive Date: 20070129
  Receipt Date: 20070124
  Transmission Date: 20070707
  Serious: Yes (Hospitalization)
  Sender: FDA-Public Use
  Company Number: JP-AVENTIS-200710118JP

PATIENT
  Age: 68 Year
  Sex: Male

DRUGS (4)
  1. AMARYL [Suspect]
     Indication: DIABETES MELLITUS
     Route: 048
  2. AMLODIPINE BESYLATE [Concomitant]
  3. TENORMIN [Concomitant]
  4. DIGOXIN [Concomitant]

REACTIONS (4)
  - EPISTAXIS [None]
  - MELAENA [None]
  - RED BLOOD CELL COUNT DECREASED [None]
  - SHOCK HAEMORRHAGIC [None]
